FAERS Safety Report 6642754-X (Version None)
Quarter: 2010Q1

REPORT INFORMATION
  Report Type: 
  Country: None (occurrence: None)
  Receive Date: 20100319
  Receipt Date: 20100309
  Transmission Date: 20100710
  Serious: Yes (Other)
  Sender: FDA-Public Use
  Company Number: US-PFIZER INC-2010030354

PATIENT
  Age: 32 Year
  Sex: Female

DRUGS (3)
  1. GEODON [Suspect]
  2. ILOPERIDONE [Suspect]
  3. SEROQUEL [Suspect]

REACTIONS (1)
  - SEDATION [None]
